FAERS Safety Report 7956151-8 (Version None)
Quarter: 2011Q4

REPORT INFORMATION
  Report Type: 
  Country: None (occurrence: None)
  Receive Date: 20111205
  Receipt Date: 20111123
  Transmission Date: 20120403
  Serious: Yes (Other)
  Sender: FDA-Public Use
  Company Number: US-ELI_LILLY_AND_COMPANY-US201111007336

PATIENT
  Sex: Female

DRUGS (4)
  1. BYETTA [Suspect]
     Dosage: 10 UG, BID
     Route: 058
     Dates: start: 20010901
  2. BYETTA [Suspect]
     Indication: TYPE 2 DIABETES MELLITUS
     Dosage: 5 UG, BID
     Route: 058
  3. BYETTA [Suspect]
     Dosage: 10 UG, BID
     Route: 058
  4. BYETTA [Suspect]
     Dosage: 5 UG, BID
     Route: 058
     Dates: end: 20110901

REACTIONS (9)
  - BLINDNESS [None]
  - DIABETIC RETINOPATHY [None]
  - CHROMATOPSIA [None]
  - WEIGHT DECREASED [None]
  - BLOOD GLUCOSE INCREASED [None]
  - VOMITING [None]
  - BLOOD CHOLESTEROL INCREASED [None]
  - EYE SWELLING [None]
  - BLOOD GLUCOSE DECREASED [None]
